FAERS Safety Report 4396044-9 (Version None)
Quarter: 2004Q3

REPORT INFORMATION
  Report Type: 
  Country: None (occurrence: None)
  Receive Date: 20040708
  Receipt Date: 20040625
  Transmission Date: 20050211
  Serious: Yes (Death, Other)
  Sender: FDA-Public Use
  Company Number: 2004043537

PATIENT
  Age: 60 Year
  Sex: Male

DRUGS (1)
  1. NEURONTIN [Suspect]
     Indication: NEUROPATHY PERIPHERAL
     Dosage: ORAL
     Route: 048

REACTIONS (5)
  - ANXIETY [None]
  - COMPLETED SUICIDE [None]
  - INJURY [None]
  - PAIN [None]
  - SUICIDAL IDEATION [None]
